FAERS Safety Report 11138290 (Version 1)
Quarter: 2015Q2

REPORT INFORMATION
  Report Type: Other
  Country: US (occurrence: US)
  Receive Date: 20150526
  Receipt Date: 20150526
  Transmission Date: 20150821
  Serious: Yes (Other)
  Sender: FDA-Public Use
  Company Number: US-CTI_01703_2015

PATIENT
  Age: 8 Year
  Sex: Male
  Weight: 22 kg

DRUGS (3)
  1. TACROLIMUS. [Suspect]
     Active Substance: TACROLIMUS
  2. TACROLIMUS. [Suspect]
     Active Substance: TACROLIMUS
     Indication: IMMUNOSUPPRESSION
     Dosage: (STARTED POST-OPERATIVE DAY 14)
  3. NICARDIPINE [Suspect]
     Active Substance: NICARDIPINE
     Indication: HYPERTENSION
     Dosage: DF
     Route: 041

REACTIONS (2)
  - Drug interaction [Recovered/Resolved]
  - Renal failure [Unknown]
